FAERS Safety Report 7280370-X (Version None)
Quarter: 2011Q1

REPORT INFORMATION
  Report Type: 
  Country: None (occurrence: None)
  Receive Date: 20110208
  Receipt Date: 20110127
  Transmission Date: 20110831
  Serious: Yes (Other)
  Sender: FDA-Public Use
  Company Number: US-SANOFI-AVENTIS-2010SA076582

PATIENT
  Age: 84 Year
  Sex: Female
  Weight: 76.82 kg

DRUGS (2)
  1. COUMADIN [Suspect]
     Indication: CARDIAC PACEMAKER INSERTION
     Dates: start: 20101101
  2. CLOPIDOGREL BISULFATE [Suspect]
     Route: 048
     Dates: start: 20030301

REACTIONS (5)
  - DIABETIC FOOT INFECTION [None]
  - IMPAIRED HEALING [None]
  - SKIN DISCOLOURATION [None]
  - BLOOD TEST ABNORMAL [None]
  - CARDIAC DISORDER [None]
